FAERS Safety Report 14985485 (Version 1)
Quarter: 2018Q2

REPORT INFORMATION
  Report Type: Spontaneous
  Country: US (occurrence: US)
  Receive Date: 20180607
  Receipt Date: 20180607
  Transmission Date: 20180711
  Serious: No
  Sender: FDA-Public Use
  Company Number: US-PFIZER INC-2018229007

PATIENT
  Age: 48 Year
  Sex: Female
  Weight: 108.86 kg

DRUGS (1)
  1. LYRICA [Suspect]
     Active Substance: PREGABALIN
     Indication: FIBROMYALGIA
     Dosage: DOSE UNKNOWN, CAPSULES TAKING IT ONCE OR TWICE A DAY BY MOUTH

REACTIONS (3)
  - Paraesthesia [Unknown]
  - Insomnia [Unknown]
  - Pruritus generalised [Not Recovered/Not Resolved]

NARRATIVE: CASE EVENT DATE: 201805
